FAERS Safety Report 8221142-9 (Version None)
Quarter: 2012Q1

REPORT INFORMATION
  Report Type: 
  Country: None (occurrence: None)
  Receive Date: 20120320
  Receipt Date: 20120315
  Transmission Date: 20120608
  Serious: Yes (Hospitalization, Other)
  Sender: FDA-Public Use
  Company Number: FR-PFIZER INC-2012067897

PATIENT
  Age: 82 Year
  Sex: Male

DRUGS (12)
  1. OLMESARTAN MEDOXOMIL [Suspect]
     Indication: HYPERTENSION
     Dosage: UNK
     Route: 048
     Dates: start: 20120101, end: 20120128
  2. CLAFORAN [Concomitant]
     Dosage: UNK
  3. ASPIRIN [Concomitant]
     Dosage: UNK
  4. PLAVIX [Concomitant]
     Dosage: UNK
  5. ESIDRIX [Concomitant]
     Dosage: UNK
  6. VENTOLIN [Concomitant]
     Dosage: UNK
  7. UMULINE [Concomitant]
     Dosage: UNK
  8. AMOXICILLIN AND CLAVULANATE POTASSIUM [Suspect]
     Indication: LUNG INFECTION
     Dosage: UNK
     Route: 048
     Dates: start: 20120123, end: 20120128
  9. ATORVASTATIN [Suspect]
     Indication: HYPERCHOLESTEROLAEMIA
     Dosage: UNK
     Route: 048
     Dates: end: 20120128
  10. AMLODIPINE BESYLATE [Concomitant]
     Dosage: UNK
  11. GLUCOPHAGE [Suspect]
     Indication: TYPE 2 DIABETES MELLITUS
     Dosage: UNK
     Route: 048
     Dates: end: 20120128
  12. ACETAMINOPHEN [Suspect]
     Dosage: UNK
     Route: 048
     Dates: end: 20120128

REACTIONS (4)
  - HEPATIC CYST [None]
  - JAUNDICE [None]
  - LIVER INJURY [None]
  - LUNG INFECTION [None]
